FAERS Safety Report 10593283 (Version 2)
Quarter: 2014Q4

REPORT INFORMATION
  Report Type: Spontaneous
  Country: FR (occurrence: FR)
  Receive Date: 20141119
  Receipt Date: 20141230
  Transmission Date: 20150529
  Serious: Yes (Hospitalization)
  Sender: FDA-Public Use
  Company Number: FR-SA-2014SA157311

PATIENT
  Age: 86 Year
  Sex: Female

DRUGS (14)
  1. FLECTOR [Suspect]
     Active Substance: DICLOFENAC EPOLAMINE
     Route: 061
     Dates: start: 201410, end: 20141008
  2. FUROSEMIDE. [Concomitant]
     Active Substance: FUROSEMIDE
     Route: 048
     Dates: start: 201405
  3. BACTRIM [Suspect]
     Active Substance: SULFAMETHOXAZOLE\TRIMETHOPRIM
     Indication: URINARY TRACT INFECTION
     Route: 048
     Dates: start: 20140930, end: 20141007
  4. ACTISKENAN [Concomitant]
     Active Substance: MORPHINE SULFATE
     Dates: start: 201410
  5. CALCIDOSE VITAMINE D [Concomitant]
     Active Substance: CALCIUM\CHOLECALCIFEROL
     Dosage: 2 SACHETS/DAY
  6. ZOPICLONE [Concomitant]
     Active Substance: ZOPICLONE
     Dosage: STRENGTH: 7.5 MG
     Route: 048
     Dates: start: 2008, end: 20141009
  7. ZOCOR [Concomitant]
     Active Substance: SIMVASTATIN
     Dosage: STRENGTH:20 MG
     Dates: end: 201410
  8. SKENAN [Concomitant]
     Active Substance: MORPHINE SULFATE
     Dates: start: 201410
  9. PRADAXA [Suspect]
     Active Substance: DABIGATRAN ETEXILATE MESYLATE
     Indication: ATRIAL FIBRILLATION
     Dosage: STRENGTH: 110 MG
     Route: 048
     Dates: start: 20130122, end: 20141008
  10. APROVEL [Suspect]
     Active Substance: IRBESARTAN
     Route: 048
     Dates: start: 2008, end: 20141010
  11. CARDENSIEL [Concomitant]
     Active Substance: BISOPROLOL FUMARATE
     Indication: ATRIAL FIBRILLATION
     Dosage: STRENGTH:2.5 MG; FORM:FILM-COATED DIVISIBLE TABLETS
     Route: 048
     Dates: start: 20130122, end: 20141010
  12. ARTELAC [Concomitant]
     Active Substance: HYPROMELLOSES
  13. CORDARONE [Suspect]
     Active Substance: AMIODARONE HYDROCHLORIDE
     Dosage: STRENGTH: 200G?FORM:SCORED TABLET
     Route: 048
     Dates: start: 201310, end: 20141010
  14. GLICLAZIDE [Concomitant]
     Active Substance: GLICLAZIDE
     Dosage: STRENGTH:40 MG
     Route: 048
     Dates: start: 2008, end: 20141009

REACTIONS (3)
  - Hyperkalaemia [Recovered/Resolved]
  - Drug level increased [Recovered/Resolved]
  - Acute kidney injury [Recovered/Resolved]

NARRATIVE: CASE EVENT DATE: 20141010
